FAERS Safety Report 19950959 (Version 1)
Quarter: 2021Q4

REPORT INFORMATION
  Report Type: Report from Study
  Country: None (occurrence: US)
  Receive Date: 20211014
  Receipt Date: 20211014
  Transmission Date: 20220303
  Serious: Yes (Other)
  Sender: FDA-Public Use
  Company Number: US-ABBVIE-21K-163-4117695-00

PATIENT
  Sex: Male

DRUGS (1)
  1. IMBRUVICA [Suspect]
     Active Substance: IBRUTINIB
     Indication: Mantle cell lymphoma
     Route: 048
     Dates: start: 20201106

REACTIONS (5)
  - Malignant melanoma [Unknown]
  - Basosquamous carcinoma of skin [Unknown]
  - Gait disturbance [Unknown]
  - Cough [Unknown]
  - Dyspepsia [Unknown]
